FAERS Safety Report 8434879-3 (Version None)
Quarter: 2012Q2

REPORT INFORMATION
  Report Type: 
  Country: None (occurrence: None)
  Receive Date: 20120611
  Receipt Date: 20120611
  Transmission Date: 20120825
  Serious: Yes (Hospitalization)
  Sender: FDA-Public Use
  Company Number: None

PATIENT
  Age: 83 Year
  Sex: Male
  Weight: 62.2 kg

DRUGS (2)
  1. SERTRALINE HYDROCHLORIDE [Suspect]
     Dosage: 25 MGM PO
     Route: 048
     Dates: start: 20120605, end: 20120607
  2. GALANTAMINE HYDROBROMIDE [Suspect]
     Dosage: 24 MG PO
     Route: 048
     Dates: start: 20111130, end: 20120607

REACTIONS (4)
  - DECREASED ACTIVITY [None]
  - MENTAL STATUS CHANGES [None]
  - SEDATION [None]
  - DELIRIUM [None]
